FAERS Safety Report 25479992 (Version 1)
Quarter: 2025Q2

REPORT INFORMATION
  Report Type: Spontaneous
  Country: IN (occurrence: IN)
  Receive Date: 20250625
  Receipt Date: 20250625
  Transmission Date: 20250717
  Serious: Yes (Life-Threatening, Hospitalization, Other)
  Sender: CIPLA
  Company Number: IN-MLMSERVICE-20250605-PI530618-00082-1

PATIENT

DRUGS (2)
  1. CARBOPLATIN [Suspect]
     Active Substance: CARBOPLATIN
     Indication: Testicular germ cell tumour
  2. ETOPOSIDE [Suspect]
     Active Substance: ETOPOSIDE
     Indication: Testicular germ cell tumour

REACTIONS (4)
  - Neutropenia [Recovered/Resolved]
  - Intussusception [Recovered/Resolved]
  - Tumour haemorrhage [Recovered/Resolved]
  - Thrombocytopenia [Recovered/Resolved]
